FAERS Safety Report 22661668 (Version 1)
Quarter: 2023Q2

REPORT INFORMATION
  Report Type: Spontaneous
  Country: US (occurrence: US)
  Receive Date: 20230630
  Receipt Date: 20230630
  Transmission Date: 20230721
  Serious: No
  Sender: FDA-Public Use
  Company Number: US-JAZZ PHARMACEUTICALS-2022-US-037085

PATIENT
  Sex: Male

DRUGS (3)
  1. EPIDIOLEX [Suspect]
     Active Substance: CANNABIDIOL
     Indication: Nausea
     Dosage: 1.1 MILLILITER
  2. EPIDIOLEX [Suspect]
     Active Substance: CANNABIDIOL
     Indication: Liver disorder
  3. KEPPRA [Concomitant]
     Active Substance: LEVETIRACETAM
     Indication: Seizure
     Dosage: UNK

REACTIONS (9)
  - Gallbladder disorder [Unknown]
  - Functional gastrointestinal disorder [Unknown]
  - Decubitus ulcer [Unknown]
  - Blood bilirubin increased [Unknown]
  - Ill-defined disorder [Unknown]
  - Illness [Unknown]
  - Drug ineffective [Unknown]
  - Off label use [Unknown]
  - Product odour abnormal [Unknown]
